FAERS Safety Report 19995940 (Version 6)
Quarter: 2022Q2

REPORT INFORMATION
  Report Type: Spontaneous
  Country: US (occurrence: None)
  Receive Date: 20211026
  Receipt Date: 20220624
  Transmission Date: 20220720
  Serious: Yes (Other)
  Sender: FDA-Public Use
  Company Number: US-ROCHE-2936916

PATIENT
  Sex: Male
  Weight: 147.55 kg

DRUGS (17)
  1. OCREVUS [Suspect]
     Active Substance: OCRELIZUMAB
     Indication: Multiple sclerosis
     Dosage: SECOND INFUSION: 24/JUN/2021?FOLLOWED BY 600 MG ONCE EVERY 6 MONTHS. 300 MG/ 10 ML
     Route: 042
     Dates: start: 20210519
  2. OCREVUS [Suspect]
     Active Substance: OCRELIZUMAB
     Indication: Multiple sclerosis
     Route: 042
     Dates: start: 202201
  3. OCREVUS [Suspect]
     Active Substance: OCRELIZUMAB
     Route: 042
     Dates: start: 202105
  4. SYMMETREL [Concomitant]
     Active Substance: AMANTADINE HYDROCHLORIDE
     Dates: start: 20210928
  5. ASPIRIN [Concomitant]
     Active Substance: ASPIRIN
     Route: 048
  6. LIPITOR [Concomitant]
     Active Substance: ATORVASTATIN CALCIUM
     Route: 048
  7. AZELASTINE HYDROCHLORIDE [Concomitant]
     Active Substance: AZELASTINE HYDROCHLORIDE
     Dosage: ADMINISTER ONE SPRAY TO TWO SPRAY INTO EACH NOSTRIL 1 TIMES DAILY.
  8. CARBAMAZEPINE [Concomitant]
     Active Substance: CARBAMAZEPINE
     Route: 048
     Dates: start: 20210223
  9. FLEXERIL [Concomitant]
     Active Substance: CYCLOBENZAPRINE HYDROCHLORIDE
  10. TRULICITY [Concomitant]
     Active Substance: DULAGLUTIDE
     Dosage: INJECT 1 SYRINGE UNDER THE SKIN ONCE WEEKLY
     Dates: start: 20210905
  11. CYMBALTA [Concomitant]
     Active Substance: DULOXETINE HYDROCHLORIDE
     Route: 048
  12. NASALIDE [Concomitant]
     Active Substance: FLUNISOLIDE
     Dosage: 2 SPRAY EACH NOSTRIL TWICE A DAILY, AS NEEDED
     Dates: start: 20201001
  13. GLUCOTROL [Concomitant]
     Active Substance: GLIPIZIDE
  14. ADVIL [Concomitant]
     Active Substance: IBUPROFEN
     Route: 048
     Dates: start: 20210223
  15. LIDOCAINE [Concomitant]
     Active Substance: LIDOCAINE
     Dosage: APPLY ONE PATCH TOPICALLY 1 TIME A EACH DAY, APPLY TO AFFECTED AREA
     Dates: start: 20210721, end: 20211019
  16. CLARITIN [Concomitant]
     Active Substance: LORATADINE
     Route: 048
  17. METFORMIN HYDROCHLORIDE [Concomitant]
     Active Substance: METFORMIN HYDROCHLORIDE
     Dates: start: 20210628, end: 20211130

REACTIONS (7)
  - Multiple sclerosis [Unknown]
  - Multiple sclerosis relapse [Unknown]
  - Drug ineffective [Unknown]
  - Vision blurred [Unknown]
  - Fall [Unknown]
  - Rib fracture [Unknown]
  - Multiple sclerosis [Unknown]
